FAERS Safety Report 6794823-1 (Version None)
Quarter: 2010Q2

REPORT INFORMATION
  Report Type: 
  Country: None (occurrence: None)
  Receive Date: 20100624
  Receipt Date: 20100624
  Transmission Date: 20101027
  Serious: No
  Sender: FDA-Public Use
  Company Number: None

PATIENT
  Age: 60 Year
  Sex: Female
  Weight: 45.3597 kg

DRUGS (2)
  1. TRAMADOL HCL [Suspect]
     Indication: ASTHENIA
     Dosage: 200 MG ER 1 EVERY 24 HOURS ORAL
     Route: 048
     Dates: start: 20100109, end: 20100222
  2. TRAMADOL HCL [Suspect]
     Indication: NEURALGIA
     Dosage: 200 MG ER 1 EVERY 24 HOURS ORAL
     Route: 048
     Dates: start: 20100109, end: 20100222

REACTIONS (2)
  - MALAISE [None]
  - UNEVALUABLE EVENT [None]
